FAERS Safety Report 4303257-0 (Version None)
Quarter: 2004Q1

REPORT INFORMATION
  Report Type: 
  Country: None (occurrence: None)
  Receive Date: 20040223
  Receipt Date: 20040212
  Transmission Date: 20041129
  Serious: Yes (Other)
  Sender: FDA-Public Use
  Company Number: 2004199834IE

PATIENT
  Age: 7 Year
  Sex: Female
  Weight: 25 kg

DRUGS (7)
  1. ZYVOX [Suspect]
     Indication: OSTEOMYELITIS
     Dosage: 125 MG, BID, ORAL
     Route: 048
     Dates: start: 20040108, end: 20040112
  2. VALPROATE SODUIM [Concomitant]
  3. CLOZAPINE [Concomitant]
  4. TOPIRMATE [Concomitant]
  5. ETHYLSUCCINATE [Concomitant]
  6. CIPROFLOXACIN [Concomitant]
  7. FUSIDIC ACID [Concomitant]

REACTIONS (2)
  - CONVULSION [None]
  - RASH ERYTHEMATOUS [None]
